FAERS Safety Report 6638456-6 (Version None)
Quarter: 2010Q1

REPORT INFORMATION
  Report Type: 
  Country: None (occurrence: None)
  Receive Date: 20100301
  Receipt Date: 20090619
  Transmission Date: 20100710
  Serious: Yes (Hospitalization)
  Sender: FDA-Public Use
  Company Number: RB-17271-2009

PATIENT
  Age: 26 Year
  Sex: Female

DRUGS (6)
  1. SUBOXONE [Suspect]
     Indication: DRUG DEPENDENCE
     Dosage: 8 MG TID SUBLINGUAL, SUBOXONE DOSE WAS REDUCED (CONSUMER TOOK VARIOUS REDUCED DOSES). SUBLINGUAL, 8
     Route: 060
     Dates: start: 20090101, end: 20090501
  2. SUBOXONE [Suspect]
     Indication: DRUG DEPENDENCE
     Dosage: 8 MG TID SUBLINGUAL, SUBOXONE DOSE WAS REDUCED (CONSUMER TOOK VARIOUS REDUCED DOSES). SUBLINGUAL, 8
     Route: 060
     Dates: start: 20090601, end: 20090601
  3. SUBOXONE [Suspect]
     Indication: DRUG DEPENDENCE
     Dosage: 8 MG TID SUBLINGUAL, SUBOXONE DOSE WAS REDUCED (CONSUMER TOOK VARIOUS REDUCED DOSES). SUBLINGUAL, 8
     Route: 060
     Dates: start: 20090501, end: 20090616
  4. SUBOXONE [Suspect]
     Indication: DRUG DEPENDENCE
     Dosage: 8 MG TID SUBLINGUAL, SUBOXONE DOSE WAS REDUCED (CONSUMER TOOK VARIOUS REDUCED DOSES). SUBLINGUAL, 8
     Route: 060
     Dates: start: 20090601
  5. XANAX [Concomitant]
  6. KLONOPIN [Concomitant]

REACTIONS (5)
  - DIARRHOEA [None]
  - DRUG WITHDRAWAL SYNDROME [None]
  - MUSCLE SPASMS [None]
  - TREMOR [None]
  - VOMITING [None]
